FAERS Safety Report 20050793 (Version 2)
Quarter: 2025Q2

REPORT INFORMATION
  Report Type: Spontaneous
  Country: US (occurrence: US)
  Receive Date: 20211110
  Receipt Date: 20250603
  Transmission Date: 20250717
  Serious: Yes (Other)
  Sender: AUROBINDO
  Company Number: US-MLMSERVICE-20211020-3173055-1

PATIENT
  Age: 52 Year
  Sex: Female

DRUGS (1)
  1. FLECAINIDE [Suspect]
     Active Substance: FLECAINIDE
     Indication: Atrial fibrillation
     Route: 065

REACTIONS (3)
  - Electrocardiogram QRS complex prolonged [Unknown]
  - Electrocardiogram PR prolongation [Unknown]
  - Conduction disorder [Unknown]
